FAERS Safety Report 5191211-9 (Version None)
Quarter: 2006Q4

REPORT INFORMATION
  Report Type: 
  Country: None (occurrence: None)
  Receive Date: 20061218
  Receipt Date: 20061207
  Transmission Date: 20070319
  Serious: Yes (Hospitalization, Other)
  Sender: FDA-Public Use
  Company Number: PHBS2006CH13269

PATIENT
  Age: 70 Year
  Sex: Female

DRUGS (14)
  1. ZOMETA [Suspect]
     Indication: HYPERCALCAEMIA OF MALIGNANCY
     Dosage: 4 MG, INTRAVENOUS
     Route: 042
     Dates: start: 20060713
  2. DEXAMETHASONE TAB [Suspect]
     Dosage: 40 MG
     Dates: start: 20060713, end: 20060714
  3. LASIX [Suspect]
     Dosage: 20MG, INTRAVENOUS
     Route: 042
     Dates: start: 20060710
  4. MERONEM (MEROPENEM) [Concomitant]
  5. HALDOL SOLUTAB [Concomitant]
  6. NEXIUIM (ESOMEPRAZOLE) [Concomitant]
  7. ELTRONIX (LEVOTHYROXINE SODIUM) [Concomitant]
  8. GRANOCYTE CHUGAI (LENOGRASTIM) [Concomitant]
  9. KONAKION [Concomitant]
  10. ACETAMINOPHEN [Concomitant]
  11. ACIDUM FOLICUM STREULI (FOLIC ACID) [Concomitant]
  12. DISTRANEURIN (CLOMETHIAZOLE EDISILATE) [Concomitant]
  13. RESYL (CODEINE PHOSPHATE HEMIHYDRATE) [Concomitant]
  14. HAEMODIALYSIS (NO INGREDIENTS/SUBSTANCES) [Concomitant]

REACTIONS (11)
  - AGITATION [None]
  - BRONCHOPNEUMONIA [None]
  - GASTROOESOPHAGEAL REFLUX DISEASE [None]
  - GRAND MAL CONVULSION [None]
  - HAEMODIALYSIS [None]
  - HYPOCALCAEMIA [None]
  - HYPOTHYROIDISM [None]
  - PAIN [None]
  - PRESCRIBED OVERDOSE [None]
  - RESTLESSNESS [None]
  - SLEEP DISORDER [None]
